FAERS Safety Report 14674114 (Version 1)
Quarter: 2018Q1

REPORT INFORMATION
  Report Type: Spontaneous
  Country: US (occurrence: US)
  Receive Date: 20180323
  Receipt Date: 20180323
  Transmission Date: 20180509
  Serious: No
  Sender: FDA-Public Use
  Company Number: US-PERRIGO-17US002574

PATIENT
  Age: 30 Year
  Sex: Female
  Weight: 56.24 kg

DRUGS (2)
  1. ACETAMINOPHEN. [Suspect]
     Active Substance: ACETAMINOPHEN
     Indication: PAIN
     Dosage: 1300 MG, EVERY 4 HOURS
     Route: 048
     Dates: start: 201603, end: 201702
  2. ACETAMINOPHEN. [Suspect]
     Active Substance: ACETAMINOPHEN
     Dosage: 1300 MG, EVERY 4 HOURS
     Route: 048
     Dates: start: 201702, end: 20170320

REACTIONS (3)
  - Drug effect decreased [Unknown]
  - Incorrect drug administration duration [Recovered/Resolved]
  - Inappropriate schedule of drug administration [Recovered/Resolved]

NARRATIVE: CASE EVENT DATE: 201603
